FAERS Safety Report 9389828 (Version 1)
Quarter: 2013Q3

REPORT INFORMATION
  Report Type: Spontaneous
  Country: US (occurrence: US)
  Receive Date: 20130708
  Receipt Date: 20130708
  Transmission Date: 20140515
  Serious: No
  Sender: FDA-Public Use
  Company Number: US-AMGEN-USASP2013042798

PATIENT
  Age: 36 Year
  Sex: Male
  Weight: 89.8 kg

DRUGS (5)
  1. ENBREL [Suspect]
     Indication: PSORIASIS
     Dosage: 50 MG, 2 TIMES/WK
     Route: 058
     Dates: start: 201305
  2. LISINOPRIL [Concomitant]
     Indication: HYPERTENSION
     Dosage: UNK
     Route: 048
  3. SYMBICORT [Concomitant]
     Dosage: UNK
     Route: 048
  4. TRAMADOL [Concomitant]
     Dosage: UNK
     Route: 048
  5. FLUOCINOLONE [Concomitant]
     Dosage: 0.025 BID/PRN
     Route: 061

REACTIONS (3)
  - Injection site bruising [Recovered/Resolved]
  - Injection site haemorrhage [Recovered/Resolved]
  - Injection site reaction [Recovered/Resolved]
